FAERS Safety Report 7235170-3 (Version None)
Quarter: 2011Q1

REPORT INFORMATION
  Report Type: 
  Country: None (occurrence: None)
  Receive Date: 20110120
  Receipt Date: 20110111
  Transmission Date: 20110831
  Serious: Yes (Life-Threatening, Hospitalization, Other)
  Sender: FDA-Public Use
  Company Number: US-PFIZER INC-2009237983

PATIENT
  Sex: Female

DRUGS (36)
  1. INDERAL [Concomitant]
     Indication: MIGRAINE
  2. SOMA [Concomitant]
     Indication: MUSCLE RELAXANT THERAPY
     Dosage: UNK
     Dates: start: 19900101, end: 20000101
  3. TESTOSTERONE [Suspect]
     Indication: HORMONE REPLACEMENT THERAPY
     Dosage: 1% 5GM
     Dates: start: 20060810, end: 20070801
  4. KLONOPIN [Concomitant]
     Dosage: UNK
     Dates: start: 20091103
  5. OXYCONTIN [Concomitant]
     Dosage: UNK
  6. PROVERA [Suspect]
     Indication: HORMONE REPLACEMENT THERAPY
     Dosage: 2.5 MG, UNK
     Dates: start: 19850101, end: 20070801
  7. COMBIPATCH [Suspect]
     Indication: HORMONE REPLACEMENT THERAPY
     Dosage: 50/140 0.05
     Dates: start: 20010706, end: 20050501
  8. DURAGESIC-50 [Concomitant]
  9. CUMADIN [Concomitant]
     Indication: ANTICOAGULANT THERAPY
     Dosage: UNK
     Dates: start: 20030101, end: 20080101
  10. ACETYLSALICYLIC ACID [Concomitant]
     Indication: PROPHYLAXIS
     Dosage: UNK
     Dates: start: 20060101
  11. DILTIAZEM HYDROCHLORIDE [Concomitant]
     Dosage: UNK
     Dates: start: 20050101
  12. ESTRATEST [Suspect]
     Indication: HORMONE REPLACEMENT THERAPY
     Dosage: 1.25 MG, UNK
     Dates: start: 20001227, end: 20070801
  13. INDERAL [Concomitant]
     Indication: CARDIAC DISORDER
     Dosage: UNK
     Dates: start: 20030101
  14. PROMETHAZINE [Concomitant]
     Indication: NAUSEA
     Dosage: UNK
     Dates: start: 20030101
  15. LOVASTATIN [Concomitant]
     Indication: BLOOD CHOLESTEROL
     Dosage: UNK
     Dates: start: 20030101
  16. CLONAZEPAM [Concomitant]
     Indication: TREMOR
  17. ZOCOR [Concomitant]
  18. SUCRALFATE [Concomitant]
     Dosage: UNK
     Route: 048
     Dates: start: 20050101
  19. DEPO-ESTRADIOL [Suspect]
     Indication: HORMONE REPLACEMENT THERAPY
     Dosage: UNK
     Dates: start: 20010404, end: 20010601
  20. CLIMARA [Suspect]
     Indication: HORMONE REPLACEMENT THERAPY
     Dosage: 0.045/0.01 MG
     Route: 062
     Dates: start: 20061108, end: 20070801
  21. ESTRACE [Suspect]
     Indication: HORMONE REPLACEMENT THERAPY
     Dosage: 2 MG, UNK
     Dates: start: 19850101, end: 20040923
  22. DYAZIDE [Concomitant]
     Indication: MENIERE'S DISEASE
     Dosage: UNK
     Dates: start: 20030101
  23. ACETAMINOPHEN AND HYDROCODONE BITARTRATE [Concomitant]
     Indication: PAIN
     Dosage: UNK
     Dates: start: 20060101, end: 20090101
  24. ACYCLOVIR [Concomitant]
     Indication: HERPES VIRUS INFECTION
     Dosage: UNK
     Dates: start: 20080101
  25. CLONAZEPAM [Concomitant]
     Indication: ANXIETY
     Dosage: UNK
     Dates: start: 20070101
  26. FENTANYL [Concomitant]
     Indication: PAIN
     Dosage: UNK
     Dates: start: 20090601
  27. TRAZODONE [Concomitant]
     Indication: DEPRESSION
     Dosage: UNK
     Route: 048
     Dates: start: 20080101
  28. MEDROXYPROGESTERONE ACETATE [Suspect]
     Indication: HORMONE REPLACEMENT THERAPY
     Dosage: 2.5 MG, UNK
     Dates: end: 20070326
  29. CARDIZEM [Concomitant]
     Indication: OESOPHAGEAL SPASM
  30. CARISOPRODOL [Concomitant]
     Indication: MUSCLE RELAXANT THERAPY
     Dosage: UNK
     Dates: start: 19900101, end: 20080101
  31. OXYCODONE [Concomitant]
     Indication: PAIN
     Dosage: UNK
     Route: 048
     Dates: start: 20090301
  32. PREVACID [Concomitant]
     Dosage: UNK
     Route: 048
  33. FLUCONAZOLE [Concomitant]
     Route: 048
  34. CARDIZEM [Concomitant]
     Indication: HYPERTENSION
     Dosage: UNK
     Dates: start: 20000101
  35. NYSTATIN [Concomitant]
     Dosage: UNK
  36. TRAMADOL [Concomitant]
     Dosage: UNK
     Route: 048
     Dates: start: 20050101

REACTIONS (4)
  - DEPRESSION [None]
  - PAIN [None]
  - B-CELL LYMPHOMA [None]
  - BREAST CANCER [None]
